FAERS Safety Report 6175965-0 (Version None)
Quarter: 2009Q2

REPORT INFORMATION
  Report Type: 
  Country: None (occurrence: None)
  Receive Date: 20090501
  Receipt Date: 20090427
  Transmission Date: 20091009
  Serious: Yes (Other)
  Sender: FDA-Public Use
  Company Number: US-PFIZER INC-2009199015

PATIENT
  Sex: Female

DRUGS (3)
  1. ZOLOFT [Suspect]
  2. WELLBUTRIN [Suspect]
  3. SEROQUEL [Suspect]

REACTIONS (3)
  - BIPOLAR DISORDER [None]
  - FEELING ABNORMAL [None]
  - INSOMNIA [None]
